FAERS Safety Report 11643897 (Version 1)
Quarter: 2015Q4

REPORT INFORMATION
  Report Type: Spontaneous
  Country: IT (occurrence: IT)
  Receive Date: 20151020
  Receipt Date: 20151020
  Transmission Date: 20160304
  Serious: Yes (Death, Hospitalization, Other)
  Sender: FDA-Public Use
  Company Number: IT-TEVA-602477ISR

PATIENT
  Age: 60 Year
  Sex: Male

DRUGS (2)
  1. MITOMYCIN C [Suspect]
     Active Substance: MITOMYCIN
     Route: 033
  2. CISPLATIN. [Suspect]
     Active Substance: CISPLATIN
     Route: 033

REACTIONS (1)
  - Wernicke^s encephalopathy [Fatal]
